FAERS Safety Report 8593382 (Version 3)
Quarter: 2013Q4

REPORT INFORMATION
  Report Type: Spontaneous
  Country: US (occurrence: US)
  Receive Date: 20120604
  Receipt Date: 20131203
  Transmission Date: 20140711
  Serious: Yes (Hospitalization, Disabling)
  Sender: FDA-Public Use
  Company Number: US-ASTRAZENECA-2012SE35261

PATIENT
  Age: 58 Year
  Sex: Male
  Weight: 76.2 kg

DRUGS (8)
  1. NEXIUM [Suspect]
     Indication: GASTROOESOPHAGEAL REFLUX DISEASE
     Route: 048
     Dates: start: 20020204
  2. NEXIUM [Suspect]
     Indication: GASTROOESOPHAGEAL REFLUX DISEASE
     Route: 048
     Dates: start: 20020402
  3. OMEPRAZOLE [Suspect]
     Indication: GASTROOESOPHAGEAL REFLUX DISEASE
     Route: 048
     Dates: start: 2004
  4. OMEPRAZOLE [Suspect]
     Indication: GASTROOESOPHAGEAL REFLUX DISEASE
     Route: 048
     Dates: start: 200412
  5. PEPTO BISMOL [Concomitant]
  6. LOTENSIN [Concomitant]
     Indication: HYPERTENSION
  7. TOPROL [Concomitant]
     Indication: HYPERTENSION
  8. LIPITOR [Concomitant]
     Indication: BLOOD CHOLESTEROL ABNORMAL

REACTIONS (7)
  - Foot fracture [Unknown]
  - Ligament sprain [Unknown]
  - Chest pain [Unknown]
  - Cardiac disorder [Unknown]
  - Multiple fractures [Unknown]
  - Angina pectoris [Unknown]
  - Osteoporosis [Unknown]
